FAERS Safety Report 24797295 (Version 1)
Quarter: 2025Q1

REPORT INFORMATION
  Report Type: Spontaneous
  Country: US (occurrence: US)
  Receive Date: 20250102
  Receipt Date: 20250102
  Transmission Date: 20250409
  Serious: No
  Sender: STALLERGENES
  Company Number: US-AIMMUNE THERAPEUTICS, INC.-2024AIMT00854

PATIENT
  Age: 14 Year
  Sex: Male
  Weight: 52.608 kg

DRUGS (4)
  1. PALFORZIA [Suspect]
     Active Substance: PEANUT
     Indication: Food allergy
     Dates: start: 20240311, end: 20240311
  2. PALFORZIA [Suspect]
     Active Substance: PEANUT
     Dates: start: 20240517, end: 20240517
  3. PALFORZIA [Suspect]
     Active Substance: PEANUT
     Dosage: 20 MG, 1X/DAY
     Dates: start: 20240518, end: 20240614
  4. ZYRTEC [Concomitant]
     Active Substance: CETIRIZINE HYDROCHLORIDE
     Indication: Rhinitis allergic

REACTIONS (4)
  - Abdominal pain [Recovered/Resolved]
  - Nausea [Unknown]
  - Vomiting [Not Recovered/Not Resolved]
  - Throat irritation [Unknown]

NARRATIVE: CASE EVENT DATE: 20240517
